FAERS Safety Report 8380314 (Version 2)
Quarter: 2013Q1

REPORT INFORMATION
  Report Type: Report from Study
  Country: PR (occurrence: PR)
  Receive Date: 20120129
  Receipt Date: 20130130
  Transmission Date: 20140127
  Serious: No
  Sender: FDA-Public Use
  Company Number: PR-ABBOTT-11P-131-0887455-00

PATIENT
  Sex: Female
  Weight: 72.64 kg

DRUGS (7)
  1. HUMIRA 40 MG/0.8 ML PEN [Suspect]
     Indication: RHEUMATOID ARTHRITIS
     Route: 058
     Dates: end: 201112
  2. HUMIRA 40 MG/0.8 ML PEN [Suspect]
     Route: 058
  3. ARAVA [Concomitant]
     Indication: RHEUMATOID ARTHRITIS
     Route: 048
  4. RELAFEN [Concomitant]
     Indication: RHEUMATOID ARTHRITIS
     Route: 048
  5. FOLIC ACID [Concomitant]
     Indication: RHEUMATOID ARTHRITIS
     Route: 048
  6. FOSAMAX [Concomitant]
     Indication: OSTEOPENIA
     Dosage: 1 TABLET WEEKLY
     Route: 048
  7. FERROUS SULFATE [Concomitant]
     Indication: HAEMOGLOBIN DECREASED
     Route: 048

REACTIONS (2)
  - Nasopharyngitis [Recovered/Resolved]
  - Dysphonia [Recovered/Resolved]
